FAERS Safety Report 20131320 (Version 1)
Quarter: 2021Q4

REPORT INFORMATION
  Report Type: Spontaneous
  Country: US (occurrence: None)
  Receive Date: 20211130
  Receipt Date: 20211130
  Transmission Date: 20220303
  Serious: No
  Sender: FDA-Public Use
  Company Number: None

PATIENT
  Sex: Female
  Weight: 68 kg

DRUGS (5)
  1. MYALEPT [Suspect]
     Active Substance: METRELEPTIN
     Indication: Lipodystrophy acquired
     Dosage: FREQUENCY : TWICE A DAY;?
     Route: 058
  2. BACTERIOSTATIC WATER [Concomitant]
     Active Substance: WATER
  3. HUMULIN R [Concomitant]
     Active Substance: INSULIN HUMAN
  4. LISINOPRIL [Concomitant]
     Active Substance: LISINOPRIL
  5. FENOFIBRATE [Concomitant]
     Active Substance: FENOFIBRATE

REACTIONS (3)
  - Treatment noncompliance [None]
  - Fatigue [None]
  - Intentional dose omission [None]
